FAERS Safety Report 7236922-6 (Version None)
Quarter: 2011Q1

REPORT INFORMATION
  Report Type: 
  Country: None (occurrence: None)
  Receive Date: 20110121
  Receipt Date: 20110114
  Transmission Date: 20110831
  Serious: Yes (Other)
  Sender: FDA-Public Use
  Company Number: FR-AMGEN-FRASP2011002295

PATIENT

DRUGS (2)
  1. ADALIMUMAB [Suspect]
     Indication: PSORIATIC ARTHROPATHY
  2. ETANERCEPT [Suspect]
     Indication: PSORIATIC ARTHROPATHY
     Dosage: UNK

REACTIONS (3)
  - TUBERCULOSIS [None]
  - PYREXIA [None]
  - WEIGHT DECREASED [None]
